FAERS Safety Report 7205402-6 (Version None)
Quarter: 2010Q4

REPORT INFORMATION
  Report Type: 
  Country: None (occurrence: None)
  Receive Date: 20101231
  Receipt Date: 20101221
  Transmission Date: 20110411
  Serious: No
  Sender: FDA-Public Use
  Company Number: US-PFIZER INC-2010151018

PATIENT
  Sex: Female
  Weight: 62.585 kg

DRUGS (3)
  1. ALAVERT [Suspect]
     Indication: NASAL CONGESTION
     Dosage: UNK
     Route: 048
     Dates: start: 20101104, end: 20101108
  2. COUMADIN [Concomitant]
     Indication: ATRIAL FIBRILLATION
     Dosage: DAILY
  3. MULTIVITAMIN [Concomitant]
     Dosage: UNK

REACTIONS (4)
  - ANXIETY [None]
  - FEELING JITTERY [None]
  - INSOMNIA [None]
  - NERVOUSNESS [None]
